FAERS Safety Report 8878803 (Version 3)
Quarter: 2013Q1

REPORT INFORMATION
  Report Type: Spontaneous
  Country: AU (occurrence: AU)
  Receive Date: 20121026
  Receipt Date: 20130311
  Transmission Date: 20140127
  Serious: Yes (Death, Other)
  Sender: FDA-Public Use
  Company Number: AU-ROCHE-1148947

PATIENT
  Sex: Female
  Weight: 65 kg

DRUGS (11)
  1. HERCEPTIN [Suspect]
     Indication: PRODUCT USED FOR UNKNOWN INDICATION
     Route: 042
     Dates: start: 20120213, end: 20121212
  2. XELODA [Suspect]
     Indication: PRODUCT USED FOR UNKNOWN INDICATION
     Route: 065
     Dates: end: 201202
  3. PERTUZUMAB [Suspect]
     Indication: PRODUCT USED FOR UNKNOWN INDICATION
     Route: 042
     Dates: start: 20121122, end: 20121212
  4. DOCETAXEL [Concomitant]
  5. ABRAXANE [Concomitant]
  6. GEMCITABINE [Concomitant]
  7. CARBOPLATIN [Concomitant]
  8. PACLITAXEL [Concomitant]
  9. LAPATINIB [Concomitant]
  10. VINORELBINE [Concomitant]
  11. TYKERB [Concomitant]

REACTIONS (3)
  - Breast cancer metastatic [Fatal]
  - Disease progression [Unknown]
  - Cardiomyopathy [Unknown]
